FAERS Safety Report 6013632-4 (Version None)
Quarter: 2008Q4

REPORT INFORMATION
  Report Type: 
  Country: None (occurrence: None)
  Receive Date: 20081219
  Receipt Date: 20081117
  Transmission Date: 20090506
  Serious: Yes (Hospitalization)
  Sender: FDA-Public Use
  Company Number: US-ROCHE-600363

PATIENT
  Sex: Male

DRUGS (13)
  1. CAPECITABINE [Suspect]
     Dosage: 1500 MG, BID
     Route: 048
     Dates: start: 20080929
  2. ERLOTINIB [Suspect]
     Dosage: 100 MG, QD
     Route: 048
     Dates: start: 20080929
  3. LANTUS [Concomitant]
     Indication: DRUG USE FOR UNKNOWN INDICATION
     Dosage: 45 UNIT, UNK
  4. LANTUS [Concomitant]
     Dosage: 20 UNIT, UNK
  5. HUMALOG [Concomitant]
     Indication: DRUG USE FOR UNKNOWN INDICATION
     Dosage: 15 UNIT, UNK
  6. HUMALOG [Concomitant]
     Dosage: 5 UNIT, UNK
  7. LISINOPRIL [Concomitant]
     Indication: DRUG USE FOR UNKNOWN INDICATION
     Dosage: 10 MG, UNK
  8. LOVASTATIN [Concomitant]
     Indication: DRUG USE FOR UNKNOWN INDICATION
     Dosage: 40 MG, UNK
  9. RANITIDINE [Concomitant]
     Indication: DRUG USE FOR UNKNOWN INDICATION
     Dosage: 300 MG, UNK
  10. PERCOCET [Concomitant]
     Indication: DRUG USE FOR UNKNOWN INDICATION
  11. ZOFRAN [Concomitant]
     Indication: DRUG USE FOR UNKNOWN INDICATION
     Dosage: 8 MG, UNK
  12. COMPAZINE [Concomitant]
     Indication: DRUG USE FOR UNKNOWN INDICATION
     Dosage: 10 MG, UNK
  13. REGLAN [Concomitant]
     Indication: DRUG USE FOR UNKNOWN INDICATION
     Dosage: 10 MG, UNK

REACTIONS (2)
  - BLOOD GLUCOSE DECREASED [None]
  - GRAND MAL CONVULSION [None]
